FAERS Safety Report 8987940 (Version 1)
Quarter: 2012Q4

REPORT INFORMATION
  Report Type: 
  Country: US (occurrence: US)
  Receive Date: 20121227
  Receipt Date: 20121227
  Transmission Date: 20130627
  Serious: Yes (Other)
  Sender: FDA-Public Use
  Company Number: US-PFIZER INC-2012326918

PATIENT
  Age: 70 Year
  Sex: Male
  Weight: 97.96 kg

DRUGS (2)
  1. NEURONTIN [Suspect]
     Indication: NEUROPATHY
     Dosage: UNK
     Dates: start: 2010
  2. LYRICA [Suspect]
     Indication: NEUROPATHY
     Dosage: 100 mg, 3x/day
     Dates: start: 2010

REACTIONS (3)
  - Cerebrovascular accident [Unknown]
  - Bradyphrenia [Unknown]
  - Drug ineffective [Unknown]
